FAERS Safety Report 22237326 (Version 1)
Quarter: 2023Q2

REPORT INFORMATION
  Report Type: Spontaneous
  Country: JP (occurrence: JP)
  Receive Date: 20230421
  Receipt Date: 20230421
  Transmission Date: 20230722
  Serious: Yes (Hospitalization, Other)
  Sender: FDA-Public Use
  Company Number: JP-TAKEDA-2022TJP077579

PATIENT
  Age: 46 Year
  Sex: Female

DRUGS (1)
  1. ENTYVIO [Suspect]
     Active Substance: VEDOLIZUMAB
     Indication: Crohn^s disease
     Dosage: UNK, Q8WEEKS
     Route: 041

REACTIONS (3)
  - Small intestinal resection [Unknown]
  - Post procedural complication [Unknown]
  - Enterocutaneous fistula [Unknown]
